FAERS Safety Report 19499087 (Version 1)
Quarter: 2021Q3

REPORT INFORMATION
  Report Type: Spontaneous
  Country: US (occurrence: US)
  Receive Date: 20210706
  Receipt Date: 20210706
  Transmission Date: 20211014
  Serious: No
  Sender: FDA-Public Use
  Company Number: US-GLAXOSMITHKLINE-US2021140817

PATIENT
  Age: 88 Year
  Sex: Female

DRUGS (1)
  1. FLOVENT HFA [Suspect]
     Active Substance: FLUTICASONE PROPIONATE
     Indication: LUNG DISORDER
     Dosage: UNK
     Route: 055

REACTIONS (1)
  - Cough [Unknown]

NARRATIVE: CASE EVENT DATE: 202106
